FAERS Safety Report 5754029-1 (Version None)
Quarter: 2008Q2

REPORT INFORMATION
  Report Type: 
  Country: None (occurrence: None)
  Receive Date: 20080530
  Receipt Date: 20080519
  Transmission Date: 20081010
  Serious: Yes (Other)
  Sender: FDA-Public Use
  Company Number: PHHY2008BE09001

PATIENT
  Age: 74 Year
  Sex: Female

DRUGS (3)
  1. DIOVAN [Suspect]
     Indication: HYPERTENSION
     Dosage: 80 MG DAILY
     Route: 048
     Dates: start: 20070501
  2. DIOVAN [Interacting]
     Dosage: 160 MG DAILY
     Route: 048
  3. ALCOHOL [Interacting]

REACTIONS (4)
  - ALCOHOL INTERACTION [None]
  - BLOOD PRESSURE SYSTOLIC INCREASED [None]
  - INTRACRANIAL HAEMATOMA [None]
  - LOSS OF CONSCIOUSNESS [None]
